FAERS Safety Report 8096142-2 (Version None)
Quarter: 2012Q1

REPORT INFORMATION
  Report Type: 
  Country: None (occurrence: None)
  Receive Date: 20120131
  Receipt Date: 20120126
  Transmission Date: 20120608
  Serious: Yes (Hospitalization)
  Sender: FDA-Public Use
  Company Number: JP-GLAXOSMITHKLINE-B0762451A

PATIENT
  Age: 27 Year
  Sex: Male

DRUGS (6)
  1. IRRIBOW [Concomitant]
     Indication: IRRITABLE BOWEL SYNDROME
     Dosage: 5MCG THREE TIMES PER DAY
     Route: 048
     Dates: start: 20110824, end: 20110930
  2. ACETAMINOPHEN [Concomitant]
     Indication: PYREXIA
     Route: 048
     Dates: start: 20110925, end: 20110927
  3. MUCODYNE [Concomitant]
     Route: 048
     Dates: start: 20110925
  4. LAMICTAL [Suspect]
     Indication: EPILEPSY
     Dosage: 50MG PER DAY
     Route: 048
     Dates: start: 20110910, end: 20110930
  5. DEXTROMETHORPHAN HYDROBROMIDE [Concomitant]
     Route: 048
     Dates: start: 20110925
  6. UNKNOWN DRUG [Concomitant]
     Route: 048
     Dates: start: 20110922, end: 20110922

REACTIONS (11)
  - BLOOD LACTATE DEHYDROGENASE INCREASED [None]
  - ALANINE AMINOTRANSFERASE INCREASED [None]
  - DRUG ERUPTION [None]
  - HEPATIC FUNCTION ABNORMAL [None]
  - ORAL MUCOSAL ERYTHEMA [None]
  - SKIN EXFOLIATION [None]
  - ASPARTATE AMINOTRANSFERASE INCREASED [None]
  - PYREXIA [None]
  - CONJUNCTIVAL HYPERAEMIA [None]
  - DRUG RASH WITH EOSINOPHILIA AND SYSTEMIC SYMPTOMS [None]
  - MEASLES [None]
